FAERS Safety Report 20770061 (Version 1)
Quarter: 2022Q2

REPORT INFORMATION
  Report Type: Spontaneous
  Country: GR (occurrence: GR)
  Receive Date: 20220429
  Receipt Date: 20220429
  Transmission Date: 20220721
  Serious: Yes (Other)
  Sender: FDA-Public Use
  Company Number: None

PATIENT
  Age: 75 Year
  Sex: Female
  Weight: 73 kg

DRUGS (2)
  1. PAXLOVID [Suspect]
     Active Substance: NIRMATRELVIR\RITONAVIR
     Indication: COVID-19
     Dosage: 2 DF, FREQ:12 H;
     Route: 048
     Dates: start: 20220408, end: 20220410
  2. URESAN [CAPTOPRIL;HYDROCHLOROTHIAZIDE] [Concomitant]
     Dosage: 1 DF, 1X/DAY (STARTED APPROXIMATELY 3 YEARS AGO)

REACTIONS (1)
  - Hypertension [Recovered/Resolved]

NARRATIVE: CASE EVENT DATE: 20220409
